FAERS Safety Report 6014740-4 (Version None)
Quarter: 2008Q4

REPORT INFORMATION
  Report Type: 
  Country: None (occurrence: None)
  Receive Date: 20081219
  Receipt Date: 20081204
  Transmission Date: 20090506
  Serious: Yes (Hospitalization)
  Sender: FDA-Public Use
  Company Number: JP-GENENTECH-271391

PATIENT
  Age: 63 Year
  Sex: Female

DRUGS (15)
  1. BEVACIZUMAB [Suspect]
     Indication: BREAST CANCER METASTATIC
     Dosage: 10 MG/KG, Q2W
     Route: 042
     Dates: start: 20071015
  2. PACLITAXEL [Suspect]
     Indication: BREAST CANCER METASTATIC
     Dosage: 90 MG/M2, 1/WEEK
     Route: 042
     Dates: start: 20071015
  3. ZOMETA [Suspect]
     Indication: METASTASES TO BONE
     Dosage: UNK
     Route: 050
     Dates: start: 20060828
  4. KENALOG [Suspect]
     Indication: STOMATITIS
     Dosage: UNK
     Route: 061
     Dates: start: 20071211
  5. AMLODINE [Concomitant]
     Indication: DRUG USE FOR UNKNOWN INDICATION
  6. LENDORMIN [Concomitant]
     Indication: DRUG USE FOR UNKNOWN INDICATION
  7. KETOPROFEN [Concomitant]
     Indication: DRUG USE FOR UNKNOWN INDICATION
  8. MUCOSTA [Concomitant]
     Indication: DRUG USE FOR UNKNOWN INDICATION
     Dosage: UNK
     Dates: start: 20080407
  9. OXYTETRACYCLINE HYDROCHLORIDE [Concomitant]
     Indication: DRUG USE FOR UNKNOWN INDICATION
     Dosage: UNK
     Dates: start: 20080303
  10. MAGMITT [Concomitant]
     Indication: DRUG USE FOR UNKNOWN INDICATION
     Dosage: UNK
     Dates: start: 20080122
  11. GLYCYRON #2 [Concomitant]
     Indication: DRUG USE FOR UNKNOWN INDICATION
  12. RESTAMIN [Concomitant]
     Indication: DRUG USE FOR UNKNOWN INDICATION
     Dosage: UNK
     Dates: start: 20071015
  13. DEXAMETHASONE SODIUM PHOSPHATE [Concomitant]
     Indication: DRUG USE FOR UNKNOWN INDICATION
     Dosage: UNK
     Dates: start: 20071015
  14. ZANTAC [Concomitant]
     Indication: DRUG USE FOR UNKNOWN INDICATION
     Dosage: UNK
     Dates: start: 20071015
  15. KYTRIL [Concomitant]
     Indication: DRUG USE FOR UNKNOWN INDICATION
     Dosage: UNK
     Dates: start: 20071015

REACTIONS (4)
  - GINGIVAL PAIN [None]
  - GINGIVITIS [None]
  - OSTEITIS [None]
  - PAIN [None]
